FAERS Safety Report 20881354 (Version 1)
Quarter: 2022Q2

REPORT INFORMATION
  Report Type: Spontaneous
  Country: US (occurrence: US)
  Receive Date: 20220526
  Receipt Date: 20220526
  Transmission Date: 20220721
  Serious: No
  Sender: FDA-Public Use
  Company Number: US-RADIUS HEALTH INC.-2022US001562

PATIENT
  Sex: Female
  Weight: 81.633 kg

DRUGS (2)
  1. TYMLOS [Suspect]
     Active Substance: ABALOPARATIDE
     Indication: Senile osteoporosis
     Dosage: 80 MICROGRAM, QD
     Route: 058
     Dates: start: 202112
  2. TYMLOS [Suspect]
     Active Substance: ABALOPARATIDE
     Indication: Systemic lupus erythematosus

REACTIONS (1)
  - Illness [Unknown]
